FAERS Safety Report 5751116-9 (Version None)
Quarter: 2008Q2

REPORT INFORMATION
  Report Type: 
  Country: None (occurrence: None)
  Receive Date: 20080528
  Receipt Date: 20080516
  Transmission Date: 20081010
  Serious: Yes (Death, Hospitalization, Other)
  Sender: FDA-Public Use
  Company Number: US-ELI_LILLY_AND_COMPANY-US200805003292

PATIENT
  Sex: Female

DRUGS (1)
  1. FORTEO [Suspect]
     Dosage: UNK, UNK

REACTIONS (10)
  - BACK PAIN [None]
  - DEATH [None]
  - FATIGUE [None]
  - FLANK PAIN [None]
  - GASTRIC CANCER [None]
  - HEPATIC NEOPLASM MALIGNANT [None]
  - JOINT SWELLING [None]
  - MALAISE [None]
  - PANCREATIC CARCINOMA [None]
  - RIB FRACTURE [None]
